FAERS Safety Report 26118379 (Version 1)
Quarter: 2025Q4

REPORT INFORMATION
  Report Type: Spontaneous
  Country: CA (occurrence: CA)
  Receive Date: 20251203
  Receipt Date: 20251203
  Transmission Date: 20260117
  Serious: Yes (Hospitalization)
  Sender: PFIZER
  Company Number: CA-PFIZER INC-202500228348

PATIENT
  Age: 20 Year
  Sex: Female
  Weight: 72 kg

DRUGS (4)
  1. IXIFI [Suspect]
     Active Substance: INFLIXIMAB-QBTX
     Indication: Rheumatoid arthritis
     Dosage: 225 MG, 0,2,6, THEN EVERY 8 WEEKS
     Route: 042
     Dates: start: 20251007
  2. IXIFI [Suspect]
     Active Substance: INFLIXIMAB-QBTX
     Dosage: 225 MG,0,2,6, THEN EVERY 8 WEEKS
     Route: 042
     Dates: start: 20251021
  3. IXIFI [Suspect]
     Active Substance: INFLIXIMAB-QBTX
     Dosage: 225 MG, 5 WEEKS(225 MG,0,2,6, THEN EVERY 8 WEEKS)
     Route: 042
     Dates: start: 20251125
  4. PREDNISONE [Concomitant]
     Active Substance: PREDNISONE
     Dosage: UNK

REACTIONS (1)
  - Temporomandibular pain and dysfunction syndrome [Unknown]

NARRATIVE: CASE EVENT DATE: 20250101
